FAERS Safety Report 4638770-X (Version None)
Quarter: 2005Q2

REPORT INFORMATION
  Report Type: 
  Country: None (occurrence: None)
  Receive Date: 20050419
  Receipt Date: 20050316
  Transmission Date: 20051028
  Serious: Yes (Life-Threatening, Other)
  Sender: FDA-Public Use
  Company Number: US-BRISTOL-MYERS SQUIBB COMPANY-12900163

PATIENT
  Age: 83 Year
  Sex: Male
  Weight: 83 kg

DRUGS (10)
  1. TEQUIN [Suspect]
     Indication: EAR INFECTION
     Route: 048
     Dates: start: 20050228, end: 20050301
  2. ECOTRIN [Concomitant]
  3. CIPROFLOXACIN HCL [Concomitant]
     Route: 001
  4. COLACE [Concomitant]
  5. AMARYL [Concomitant]
  6. INSULIN [Concomitant]
  7. METFORMIN HCL [Concomitant]
  8. ZOCOR [Concomitant]
  9. AMBIEN [Concomitant]
  10. AMIODARONE HCL [Concomitant]

REACTIONS (1)
  - HYPOGLYCAEMIA [None]
